FAERS Safety Report 16828869 (Version 2)
Quarter: 2019Q4

REPORT INFORMATION
  Report Type: Spontaneous
  Country: US (occurrence: US)
  Receive Date: 20190919
  Receipt Date: 20191002
  Transmission Date: 20200122
  Serious: Yes (Hospitalization)
  Sender: FDA-Public Use
  Company Number: US-JNJFOC-20190916009

PATIENT
  Age: 56 Year
  Sex: Male
  Weight: 104.42 kg

DRUGS (1)
  1. XARELTO [Suspect]
     Active Substance: RIVAROXABAN
     Indication: THROMBOSIS
     Route: 048
     Dates: start: 2011

REACTIONS (7)
  - Product dose omission [Unknown]
  - Anaemia [Not Recovered/Not Resolved]
  - Product size issue [Unknown]
  - Drug ineffective [Unknown]
  - Blood potassium decreased [Not Recovered/Not Resolved]
  - Hospitalisation [Unknown]
  - Thrombosis [Recovered/Resolved]

NARRATIVE: CASE EVENT DATE: 20190830
